FAERS Safety Report 5150611-3 (Version None)
Quarter: 2006Q4

REPORT INFORMATION
  Report Type: 
  Country: None (occurrence: None)
  Receive Date: 20061114
  Receipt Date: 20061107
  Transmission Date: 20070319
  Serious: Yes (Hospitalization)
  Sender: FDA-Public Use
  Company Number: 2006UW22149

PATIENT
  Age: 62 Year
  Sex: Male

DRUGS (6)
  1. IRESSA [Suspect]
     Indication: TRANSITIONAL CELL CARCINOMA
     Route: 048
     Dates: start: 20060614
  2. TAXOTERE [Suspect]
     Indication: TRANSITIONAL CELL CARCINOMA
     Dosage: 25 MG/M2 IV WEEKLY FOR 4 WEEKS, 2 WEEKS OFF
     Route: 042
     Dates: start: 20060807, end: 20060821
  3. ZOCOR [Concomitant]
  4. TOPROL-XL [Concomitant]
  5. NORVASC [Concomitant]
  6. NEXIUM [Concomitant]

REACTIONS (4)
  - CATHETER RELATED INFECTION [None]
  - METASTASES TO LUNG [None]
  - PLEURAL EFFUSION [None]
  - PNEUMONIA [None]
